FAERS Safety Report 8300979 (Version 5)
Quarter: 2013Q2

REPORT INFORMATION
  Report Type: Spontaneous
  Country: US (occurrence: US)
  Receive Date: 20111219
  Receipt Date: 20130617
  Transmission Date: 20140414
  Serious: No
  Sender: FDA-Public Use
  Company Number: US-ASTRAZENECA-2011SE34320

PATIENT
  Age: 85 Year
  Sex: Female

DRUGS (5)
  1. CRESTOR [Suspect]
     Route: 048
  2. CRESTOR [Suspect]
     Dosage: EVERY OTHER DAY
     Route: 048
  3. TOPROL XL [Suspect]
     Indication: HYPERTENSION
     Route: 048
  4. TOPROL XL [Suspect]
     Indication: HYPERTENSION
     Dosage: GENERIC, 100 MG, DAILY
     Route: 048
  5. TOPROL XL [Suspect]
     Indication: HYPERTENSION
     Route: 048

REACTIONS (18)
  - Drug hypersensitivity [Unknown]
  - Adverse event [Unknown]
  - Sensitivity of teeth [Unknown]
  - Blood pressure increased [Unknown]
  - Feeling abnormal [Unknown]
  - Gastric disorder [Unknown]
  - Musculoskeletal pain [Unknown]
  - Mobility decreased [Unknown]
  - Eye disorder [Unknown]
  - Neck pain [Unknown]
  - Hypotension [Unknown]
  - Arthralgia [Recovering/Resolving]
  - Asthenia [Unknown]
  - Dizziness [Unknown]
  - Nausea [Unknown]
  - Dizziness [Unknown]
  - Drug ineffective [Unknown]
  - Intentional drug misuse [Unknown]
